FAERS Safety Report 10230827 (Version 1)
Quarter: 2014Q2

REPORT INFORMATION
  Report Type: Spontaneous
  Country: US (occurrence: US)
  Receive Date: 20140611
  Receipt Date: 20140611
  Transmission Date: 20141212
  Serious: No
  Sender: FDA-Public Use
  Company Number: US-ASTRAZENECA-2014SE38349

PATIENT
  Age: 55 Year
  Sex: Female
  Weight: 117.9 kg

DRUGS (10)
  1. SYMBICORT [Suspect]
     Indication: CHRONIC OBSTRUCTIVE PULMONARY DISEASE
     Dosage: 160/4.5, 2 PUFFS BID
     Route: 055
     Dates: start: 2008
  2. LISINOPRIL HCTZ [Suspect]
     Indication: HYPERTENSION
     Dosage: 20 MG 12.5 MG DAILY
     Route: 048
     Dates: start: 201107
  3. SEROQUEL [Suspect]
     Indication: BIPOLAR I DISORDER
     Route: 048
     Dates: start: 2004
  4. BUPROPRION [Concomitant]
     Indication: BIPOLAR I DISORDER
     Route: 048
     Dates: start: 2009
  5. CITALOPRAM HBR [Concomitant]
     Indication: ARTHRALGIA
     Route: 048
     Dates: start: 2011
  6. PRAVASTATIN [Concomitant]
     Indication: BLOOD CHOLESTEROL ABNORMAL
     Route: 048
     Dates: start: 201006
  7. OYSCO D [Concomitant]
     Indication: VITAMIN D DEFICIENCY
     Dosage: 1 TAB DAILY
     Route: 048
     Dates: start: 2009
  8. PROAIR [Concomitant]
     Indication: RESPIRATORY DISORDER
     Dosage: 2 PUFFS PRN
     Route: 055
     Dates: start: 2008
  9. AMITRIPTYLINE [Concomitant]
     Indication: SLEEP DISORDER
     Route: 048
     Dates: start: 2013
  10. AMITRIPTYLINE [Concomitant]
     Indication: NEUROPATHY PERIPHERAL
     Route: 048
     Dates: start: 2013

REACTIONS (2)
  - Injury associated with device [Not Recovered/Not Resolved]
  - Weight increased [Unknown]
